FAERS Safety Report 7353090-0 (Version None)
Quarter: 2011Q1

REPORT INFORMATION
  Report Type: 
  Country: None (occurrence: None)
  Receive Date: 20110315
  Receipt Date: 20110307
  Transmission Date: 20110831
  Serious: Yes (Hospitalization)
  Sender: FDA-Public Use
  Company Number: US-ROCHE-764433

PATIENT
  Age: 66 Year
  Sex: Male
  Weight: 178 kg

DRUGS (4)
  1. LEVOTHROID [Concomitant]
     Dates: start: 20000101
  2. CAPECITABINE [Suspect]
     Indication: COLON CANCER
     Route: 048
     Dates: start: 20101206, end: 20110123
  3. COUMADIN [Concomitant]
     Dosage: DRUG:COUMADIN ^BOOTS^
     Dates: start: 19970101
  4. TEMSIROLIMUS [Suspect]
     Route: 042
     Dates: start: 20101206, end: 20110118

REACTIONS (1)
  - CONVULSION [None]
